FAERS Safety Report 18530450 (Version 1)
Quarter: 2020Q4

REPORT INFORMATION
  Report Type: Report from Study
  Country: None (occurrence: US)
  Receive Date: 20201121
  Receipt Date: 20201121
  Transmission Date: 20210114
  Serious: Yes (Other)
  Sender: FDA-Public Use
  Company Number: US-ABBVIE-19K-163-3208593-00

PATIENT
  Sex: Male

DRUGS (52)
  1. VENCLEXTA [Suspect]
     Active Substance: VENETOCLAX
     Dosage: 2 TABS OF 100MG-WEEK 4
     Route: 048
     Dates: start: 20190709
  2. FLULAVAL [Concomitant]
     Indication: PRODUCT USED FOR UNKNOWN INDICATION
     Dosage: 0.5ML IM
     Route: 030
     Dates: start: 20191008, end: 20191008
  3. ZOSYN [Concomitant]
     Active Substance: PIPERACILLIN SODIUM\TAZOBACTAM SODIUM
     Indication: INFECTION
     Dosage: 3,375 MG, INJECTABLE, IV, ONCE
     Route: 042
     Dates: start: 20190319, end: 20190319
  4. IBRUTINIB [Concomitant]
     Active Substance: IBRUTINIB
     Dosage: 420 MG 3 CAP EACH DOSE, PO, DAILY, X 30 DAY(S)
     Route: 048
  5. FENTANYL. [Concomitant]
     Active Substance: FENTANYL
     Indication: PRODUCT USED FOR UNKNOWN INDICATION
     Dosage: 50 MCG, IV POSH
     Route: 042
     Dates: start: 20180711, end: 20180711
  6. ZOFRAN [Concomitant]
     Active Substance: ONDANSETRON HYDROCHLORIDE
     Indication: PRODUCT USED FOR UNKNOWN INDICATION
     Dosage: 8 MG ORAL TABLET PO, EVERY 12
     Route: 048
  7. CODEINE-GUAIFENESIN [Concomitant]
     Active Substance: CODEINE PHOSPHATE\GUAIFENESIN
     Indication: PRODUCT USED FOR UNKNOWN INDICATION
     Dosage: 10 G-100 MG/5 ML ORAL SYRUP
     Route: 048
  8. LORATADINE. [Concomitant]
     Active Substance: LORATADINE
     Indication: PRODUCT USED FOR UNKNOWN INDICATION
     Dosage: 10 MG ORAL TABLET DAILY
     Route: 048
  9. LOSARTAN. [Concomitant]
     Active Substance: LOSARTAN
     Indication: PRODUCT USED FOR UNKNOWN INDICATION
     Dosage: 12.5 MG ORAL TABLET DAILY
     Route: 048
  10. SUDAFED [Concomitant]
     Active Substance: PSEUDOEPHEDRINE HYDROCHLORIDE
     Indication: PRODUCT USED FOR UNKNOWN INDICATION
     Dosage: 60 MG TAB PO, EVERY 6 HOURS
     Route: 048
     Dates: start: 20190326, end: 20190326
  11. SUDAFED [Concomitant]
     Active Substance: PSEUDOEPHEDRINE HYDROCHLORIDE
     Dosage: 30 MG, TAB, PO, EVERY 6 HOURS
     Route: 048
     Dates: start: 20190321, end: 20190323
  12. LOPERAMIDE [Concomitant]
     Active Substance: LOPERAMIDE
     Indication: PRODUCT USED FOR UNKNOWN INDICATION
  13. SODIUM CHLORIDE. [Concomitant]
     Active Substance: SODIUM CHLORIDE
     Indication: PRODUCT USED FOR UNKNOWN INDICATION
     Dosage: 1,000 ML, INJECTABLE, IV, ONCE
     Route: 042
     Dates: start: 20180618, end: 20180618
  14. DUONEB [Concomitant]
     Active Substance: ALBUTEROL SULFATE\IPRATROPIUM BROMIDE
     Indication: PRODUCT USED FOR UNKNOWN INDICATION
     Dosage: 0.5 MG-2.5 MG/3 ML INHALATION SOLUTION
     Route: 055
     Dates: start: 20190319, end: 20190319
  15. VENCLEXTA [Suspect]
     Active Substance: VENETOCLAX
     Indication: CHRONIC LYMPHOCYTIC LEUKAEMIA
     Dosage: WEEK 1
     Route: 048
     Dates: start: 201906, end: 201906
  16. ALBUTEROL. [Concomitant]
     Active Substance: ALBUTEROL
     Indication: PRODUCT USED FOR UNKNOWN INDICATION
     Dosage: 3 ML, SOLUTION, NEBULIZATON, ONCE
     Route: 065
     Dates: start: 20190505, end: 20190505
  17. DOXYCYCLIN [Concomitant]
     Active Substance: DOXYCYCLINE
     Indication: PRODUCT USED FOR UNKNOWN INDICATION
     Dosage: 100 MG ORAL TAB PO, BID, X 7 DAY(S)
     Route: 048
  18. SODIUM CHLORIDE. [Concomitant]
     Active Substance: SODIUM CHLORIDE
     Dosage: 1,000 ML, INJECTABLE, IV, ONCE
     Route: 042
     Dates: start: 20180615, end: 20180615
  19. LASIX [Concomitant]
     Active Substance: FUROSEMIDE
     Indication: PRODUCT USED FOR UNKNOWN INDICATION
     Dosage: 40 MG, INJECTABLE, IV PUSH
     Route: 042
     Dates: start: 20190319, end: 20190319
  20. IMODIUM [Concomitant]
     Active Substance: LOPERAMIDE HYDROCHLORIDE
     Indication: DIARRHOEA
     Route: 048
  21. ROCEPHIN [Concomitant]
     Active Substance: CEFTRIAXONE SODIUM
     Indication: INFECTION
  22. FENTANYL. [Concomitant]
     Active Substance: FENTANYL
     Dosage: 50 MCG, IV POSH
     Route: 042
     Dates: start: 20180606, end: 20180711
  23. AMOXYCILLIN-CLAVULANATE [Concomitant]
     Indication: PRODUCT USED FOR UNKNOWN INDICATION
     Dosage: 875 MG-125 MG ORAL TABLET) 1 TAB, PO, EVERY 12 HOURS, X 3 DAY(S)
     Route: 048
  24. BUDESONIDE. [Concomitant]
     Active Substance: BUDESONIDE
     Indication: PRODUCT USED FOR UNKNOWN INDICATION
     Dosage: 32MCG/ INH NASAL SPRAY?2 SPRAY, NASAL AC BREAKFAS
     Route: 045
  25. CHONDROITIN [Concomitant]
     Active Substance: CHONDROITIN
     Indication: PRODUCT USED FOR UNKNOWN INDICATION
     Dosage: 1 TAB, PO, BID
     Route: 048
  26. OSTEO BI-FLEX [Concomitant]
     Active Substance: CHONDROITIN SULFATE A\GLUCOSAMINE
     Indication: PRODUCT USED FOR UNKNOWN INDICATION
     Route: 048
  27. VENCLEXTA [Suspect]
     Active Substance: VENETOCLAX
     Route: 048
  28. NEUTRAL PHOSPHORUS [Concomitant]
     Indication: PRODUCT USED FOR UNKNOWN INDICATION
     Dosage: 1 PKT, POWDERORAL, PO
     Route: 048
     Dates: start: 20190505, end: 20190505
  29. FUROSEMIDE. [Concomitant]
     Active Substance: FUROSEMIDE
     Indication: PRODUCT USED FOR UNKNOWN INDICATION
  30. NYSTATIN. [Concomitant]
     Active Substance: NYSTATIN
     Indication: PRODUCT USED FOR UNKNOWN INDICATION
     Dosage: 1,000,000 UNITS 10 ML EACH DOSE, PO, FOUR TIMES DAILY, X 7 DAY(S), SUSPENSION
     Route: 048
  31. MIDAZOLAM. [Concomitant]
     Active Substance: MIDAZOLAM
     Indication: PRODUCT USED FOR UNKNOWN INDICATION
     Dosage: 1 MG, IV PUSH
     Route: 042
     Dates: start: 20180606, end: 20180606
  32. METFORMIN [Concomitant]
     Active Substance: METFORMIN HYDROCHLORIDE
     Indication: PRODUCT USED FOR UNKNOWN INDICATION
     Dosage: 500 MG ORAL TABLET PO, DAILY
     Route: 048
  33. INFLUENZA [Concomitant]
     Active Substance: INFLUENZA VIRUS VACCINE
     Indication: PRODUCT USED FOR UNKNOWN INDICATION
  34. REGADENOSON [Concomitant]
     Active Substance: REGADENOSON
     Indication: PRODUCT USED FOR UNKNOWN INDICATION
     Dosage: 0.4 MG IV PUSH
     Route: 042
     Dates: start: 20190522, end: 20190522
  35. AMOXICILLIN. [Concomitant]
     Active Substance: AMOXICILLIN
     Indication: PRODUCT USED FOR UNKNOWN INDICATION
     Dosage: 875 MG-125 MG ORAL TABLET) 1 TAB, PO, EVERY 12 HOURS, X 3 DAY(S)
     Route: 048
  36. VANCOMYCIN [Concomitant]
     Active Substance: VANCOMYCIN
     Indication: LUNG DISORDER
  37. IBRUTINIB [Concomitant]
     Active Substance: IBRUTINIB
     Indication: PRODUCT USED FOR UNKNOWN INDICATION
     Dosage: 420 MG 1 TAB EACH DOSE, P0, DAILY
     Route: 048
  38. MONTELUKAST [Concomitant]
     Active Substance: MONTELUKAST SODIUM
     Indication: PRODUCT USED FOR UNKNOWN INDICATION
     Dosage: 10 MG ORAL TABLET
     Route: 048
  39. CRANBERRY. [Concomitant]
     Active Substance: CRANBERRY
     Indication: PRODUCT USED FOR UNKNOWN INDICATION
     Dosage: ORAL CAPSULE BID
     Route: 048
  40. ETODOLAC. [Concomitant]
     Active Substance: ETODOLAC
     Indication: PRODUCT USED FOR UNKNOWN INDICATION
     Dosage: 500 MG ORAL TABLET BID
     Route: 048
  41. VENCLEXTA [Suspect]
     Active Substance: VENETOCLAX
     Indication: B-CELL SMALL LYMPHOCYTIC LYMPHOMA
     Dosage: WEEK 2
     Route: 048
     Dates: start: 201906, end: 201906
  42. LOSARTAN. [Concomitant]
     Active Substance: LOSARTAN
     Route: 048
  43. ALLOPURINOL. [Concomitant]
     Active Substance: ALLOPURINOL
     Indication: PRODUCT USED FOR UNKNOWN INDICATION
     Dosage: 300 MG 1TAB EACH DOSE, PO, DAILY
     Route: 048
  44. ONDANSETRON [Concomitant]
     Active Substance: ONDANSETRON
     Indication: PRODUCT USED FOR UNKNOWN INDICATION
  45. ELITEK [Concomitant]
     Active Substance: RASBURICASE
     Indication: PRODUCT USED FOR UNKNOWN INDICATION
     Dosage: 6 MG IV INJECTABLE, ONCE, INFUSE OVER 30MINUTES
     Route: 042
     Dates: start: 20180619, end: 20180619
  46. GABAPENTIN. [Concomitant]
     Active Substance: GABAPENTIN
     Indication: PRODUCT USED FOR UNKNOWN INDICATION
     Dosage: 300 MG ORAL CAPSULE
     Route: 048
  47. VENCLEXTA [Suspect]
     Active Substance: VENETOCLAX
     Dosage: WEEK 3
     Route: 048
     Dates: start: 201906, end: 201906
  48. ROCEPHIN [Concomitant]
     Active Substance: CEFTRIAXONE SODIUM
     Indication: PNEUMONIA
     Dosage: 1000 MG INJECTABLE, IV
     Route: 042
     Dates: start: 20190505, end: 20190505
  49. VANCOMYCIN [Concomitant]
     Active Substance: VANCOMYCIN
     Indication: PROPHYLAXIS
     Dosage: 2,000 MG, IV, ONCE
     Route: 042
     Dates: start: 20190319
  50. ALBUTEROL W/IPRATROPIUM [Concomitant]
     Active Substance: ALBUTEROL\IPRATROPIUM
     Indication: PRODUCT USED FOR UNKNOWN INDICATION
  51. NEOMYCIN AND POLYMYXIN B SULFATES AND HYDROCORTISONE [Concomitant]
     Active Substance: HYDROCORTISONE\NEOMYCIN SULFATE\POLYMYXIN B SULFATE
     Indication: PRODUCT USED FOR UNKNOWN INDICATION
     Dosage: 2 DROPS, BOTH EARS, FOUR TIMES DAILY, X 10 DAY(S)?1%-0.35%-10,000 UNITS/ML OTIC SUSPENSION
  52. DUONEB [Concomitant]
     Active Substance: ALBUTEROL SULFATE\IPRATROPIUM BROMIDE
     Dosage: 3 M L, NEB SOLUTION, NEBULIZATION
     Dates: start: 20190319, end: 20190319

REACTIONS (3)
  - Memory impairment [Unknown]
  - Somnolence [Unknown]
  - Deafness [Unknown]

NARRATIVE: CASE EVENT DATE: 2019
